FAERS Safety Report 17473701 (Version 1)
Quarter: 2020Q1

REPORT INFORMATION
  Report Type: Spontaneous
  Country: US (occurrence: US)
  Receive Date: 20200228
  Receipt Date: 20200228
  Transmission Date: 20200409
  Serious: Yes (Hospitalization)
  Sender: FDA-Public Use
  Company Number: US-VERTEX PHARMACEUTICALS-2020-001829

PATIENT
  Age: 30 Year
  Sex: Female

DRUGS (33)
  1. MIRALAX [Concomitant]
     Active Substance: POLYETHYLENE GLYCOL 3350
  2. TRAMADOL HCL [Concomitant]
     Active Substance: TRAMADOL HYDROCHLORIDE
  3. TRIKAFTA [Suspect]
     Active Substance: ELEXACAFTOR\IVACAFTOR\TEZACAFTOR
     Indication: CYSTIC FIBROSIS
     Dosage: 2 TABLETS (100 MG/ 50 MG/ 75 MH) QAM; 1 TABLET (150 MG) QPM
     Route: 048
     Dates: start: 20191211
  4. AMOXICILLIN + CLAV. POTASSIUM [Concomitant]
     Active Substance: AMOXICILLIN\CLAVULANATE POTASSIUM
  5. BUSPIRONE [Concomitant]
     Active Substance: BUSPIRONE HYDROCHLORIDE
  6. FLUTICASONE. [Concomitant]
     Active Substance: FLUTICASONE
  7. TEMAZEPAM. [Concomitant]
     Active Substance: TEMAZEPAM
  8. TOBRAMYCIN. [Concomitant]
     Active Substance: TOBRAMYCIN
  9. CLONAZEPAM. [Concomitant]
     Active Substance: CLONAZEPAM
  10. PRAZOSIN HCL [Concomitant]
     Active Substance: PRAZOSIN HYDROCHLORIDE
  11. CREON [Concomitant]
     Active Substance: PANCRELIPASE AMYLASE\PANCRELIPASE LIPASE\PANCRELIPASE PROTEASE
  12. PROMETHAZINE [Concomitant]
     Active Substance: PROMETHAZINE HYDROCHLORIDE
  13. ALBUTEROL [SALBUTAMOL] [Concomitant]
     Active Substance: ALBUTEROL
  14. APAP CODEINE [Concomitant]
  15. EMBEDA [Concomitant]
     Active Substance: MORPHINE SULFATE\NALTREXONE HYDROCHLORIDE
  16. HYPERSAL [Concomitant]
     Active Substance: SODIUM CHLORIDE
  17. QUETIAPINE. [Concomitant]
     Active Substance: QUETIAPINE
  18. ZITHROMAX [Concomitant]
     Active Substance: AZITHROMYCIN DIHYDRATE
  19. AZITHROMYCIN ANHYDROUS. [Concomitant]
     Active Substance: AZITHROMYCIN ANHYDROUS
  20. FLOVENT [Concomitant]
     Active Substance: FLUTICASONE PROPIONATE
  21. FLOVENT HFA [Concomitant]
     Active Substance: FLUTICASONE PROPIONATE
  22. GABAPENTIN. [Concomitant]
     Active Substance: GABAPENTIN
  23. OMEPRAZOLE. [Concomitant]
     Active Substance: OMEPRAZOLE
  24. TOPIRAMATE. [Concomitant]
     Active Substance: TOPIRAMATE
  25. PULMOZYME [Suspect]
     Active Substance: DORNASE ALFA
     Indication: CYSTIC FIBROSIS
     Dosage: 1 MILLIGRAM PER MILLILITRE, QD
     Dates: start: 20161216
  26. MELOXICAM. [Concomitant]
     Active Substance: MELOXICAM
  27. METOPROLOL SUCCINATE. [Concomitant]
     Active Substance: METOPROLOL SUCCINATE
  28. MIRTAZAPINE. [Concomitant]
     Active Substance: MIRTAZAPINE
  29. OXYCONTIN [Concomitant]
     Active Substance: OXYCODONE HYDROCHLORIDE
  30. PANTOPRAZOLE [Concomitant]
     Active Substance: PANTOPRAZOLE
  31. RISPERIDONE. [Concomitant]
     Active Substance: RISPERIDONE
  32. TERRAMYCIN [OXYTETRACYCLINE] [Concomitant]
  33. TOBRAMYCIN + DEXAMETHASONE [Concomitant]
     Active Substance: DEXAMETHASONE\TOBRAMYCIN

REACTIONS (6)
  - Corona virus infection [Unknown]
  - Back pain [Unknown]
  - Eating disorder [Unknown]
  - Vomiting [Unknown]
  - Nausea [Unknown]
  - Decreased appetite [Not Recovered/Not Resolved]

NARRATIVE: CASE EVENT DATE: 201912
